FAERS Safety Report 9300330 (Version 1)
Quarter: 2013Q2

REPORT INFORMATION
  Report Type: Spontaneous
  Country: US (occurrence: US)
  Receive Date: 20130521
  Receipt Date: 20130521
  Transmission Date: 20140414
  Serious: Yes (Other)
  Sender: FDA-Public Use
  Company Number: US-JNJFOC-20130510721

PATIENT
  Sex: Female
  Weight: 52.16 kg

DRUGS (1)
  1. EXTRA STRENGTH TYLENOL [Suspect]
     Indication: MYALGIA
     Route: 065
     Dates: start: 2013

REACTIONS (8)
  - Ear infection [Unknown]
  - Emotional disorder [Unknown]
  - Incorrect dose administered [Unknown]
  - Drug ineffective [Unknown]
  - Dizziness [None]
  - Tinnitus [None]
  - Ear pain [None]
  - Hypoaesthesia [None]
